FAERS Safety Report 6699703-8 (Version None)
Quarter: 2010Q2

REPORT INFORMATION
  Report Type: 
  Country: None (occurrence: None)
  Receive Date: 20100428
  Receipt Date: 20100421
  Transmission Date: 20101027
  Serious: No
  Sender: FDA-Public Use
  Company Number: US-BIOGENIDEC-2010BI013231

PATIENT
  Age: 31 Year
  Sex: Male

DRUGS (4)
  1. AVONEX [Suspect]
     Indication: MULTIPLE SCLEROSIS
     Route: 030
     Dates: start: 20091215, end: 20091221
  2. AVONEX [Suspect]
     Route: 030
     Dates: start: 20091222, end: 20091228
  3. AVONEX [Suspect]
     Route: 030
     Dates: start: 20091229, end: 20100104
  4. AVONEX [Suspect]
     Route: 030
     Dates: start: 20100105

REACTIONS (6)
  - BODY TEMPERATURE INCREASED [None]
  - FEELING COLD [None]
  - HEADACHE [None]
  - HYPERHIDROSIS [None]
  - INFLUENZA LIKE ILLNESS [None]
  - TREMOR [None]
